FAERS Safety Report 9625641 (Version 3)
Quarter: 2013Q4

REPORT INFORMATION
  Report Type: Spontaneous
  Country: TR (occurrence: TR)
  Receive Date: 20131016
  Receipt Date: 20131107
  Transmission Date: 20140711
  Serious: Yes (Hospitalization, Disabling, Other)
  Sender: FDA-Public Use
  Company Number: TR-RANBAXY-2013RR-74098

PATIENT
  Age: 46 Year
  Sex: Female

DRUGS (10)
  1. QUETIAPINE [Suspect]
     Indication: BIPOLAR DISORDER
     Dosage: 900 MG/DAY
     Route: 065
  2. ARIPIPRAZOLE [Suspect]
     Indication: BIPOLAR DISORDER
     Dosage: 10 MG/DAY
     Route: 065
  3. PAROXETINE [Suspect]
     Indication: BIPOLAR DISORDER
     Dosage: 20 MG/DAY
     Route: 065
  4. VALPROIC ACID [Suspect]
     Indication: CONVULSION
     Dosage: 800-2000 MG/DAY
     Route: 065
  5. RISPERIDONE [Suspect]
     Indication: BIPOLAR DISORDER
     Dosage: 25 MG DEPOT
     Route: 030
  6. MIDAZOLAM [Suspect]
     Indication: CONVULSION
     Dosage: UNK
     Route: 051
  7. PHENYTOIN [Suspect]
     Indication: CONVULSION
     Dosage: UNK
     Route: 051
  8. DIAZEPAM [Suspect]
     Indication: CONVULSION
     Dosage: UNK
     Route: 065
  9. LITHIUM [Suspect]
     Indication: BIPOLAR DISORDER
     Dosage: 1800 MG/DAY
     Route: 065
  10. LITHIUM [Suspect]
     Indication: BIPOLAR DISORDER
     Dosage: 900 MG/DAY
     Route: 065

REACTIONS (7)
  - Toxicity to various agents [Unknown]
  - Hypotension [Unknown]
  - Respiratory failure [Unknown]
  - Prerenal failure [Recovering/Resolving]
  - Iron deficiency anaemia [Unknown]
  - Eating disorder [Unknown]
  - Dehydration [Unknown]
